FAERS Safety Report 11096091 (Version 3)
Quarter: 2015Q4

REPORT INFORMATION
  Report Type: Spontaneous
  Country: GB (occurrence: GB)
  Receive Date: 20150507
  Receipt Date: 20151215
  Transmission Date: 20160304
  Serious: Yes (Hospitalization, Other)
  Sender: FDA-Public Use
  Company Number: GB-ACCORD-030357

PATIENT
  Age: 60 Year
  Sex: Female

DRUGS (2)
  1. METHOTREXATE [Suspect]
     Active Substance: METHOTREXATE
     Indication: PRODUCT USED FOR UNKNOWN INDICATION
  2. SIMPONI [Suspect]
     Active Substance: GOLIMUMAB
     Indication: PRODUCT USED FOR UNKNOWN INDICATION
     Route: 058
     Dates: end: 20150405

REACTIONS (9)
  - Urinary tract infection [Unknown]
  - Drug hypersensitivity [Unknown]
  - Arthralgia [Unknown]
  - Malaise [Unknown]
  - Abdominal distension [Unknown]
  - Urine output decreased [Unknown]
  - Vomiting [Unknown]
  - Constipation [Recovered/Resolved]
  - Urinary retention [Unknown]

NARRATIVE: CASE EVENT DATE: 201504
